FAERS Safety Report 10673849 (Version 2)
Quarter: 2016Q4

REPORT INFORMATION
  Report Type: Report from Study
  Country: CA (occurrence: CA)
  Receive Date: 20141224
  Receipt Date: 20161123
  Transmission Date: 20170206
  Serious: Yes (Other)
  Sender: FDA-Public Use
  Company Number: CA-JNJFOC-20141212368

PATIENT
  Sex: Female
  Weight: 49.1 kg

DRUGS (1)
  1. REMICADE [Suspect]
     Active Substance: INFLIXIMAB
     Indication: CROHN^S DISEASE
     Route: 042
     Dates: start: 20140308

REACTIONS (3)
  - Intestinal resection [Unknown]
  - Hysterectomy [Unknown]
  - Abscess drainage [Unknown]
